FAERS Safety Report 14563283 (Version 2)
Quarter: 2018Q1

REPORT INFORMATION
  Report Type: Report from Study
  Country: US (occurrence: US)
  Receive Date: 20180222
  Receipt Date: 20180302
  Transmission Date: 20180509
  Serious: Yes (Life-Threatening, Hospitalization, Other)
  Sender: FDA-Public Use
  Company Number: US-BRISTOL-MYERS SQUIBB COMPANY-BMS-2018-016539

PATIENT
  Age: 47 Year
  Sex: Female

DRUGS (2)
  1. NIVOLUMAB [Suspect]
     Active Substance: NIVOLUMAB
     Indication: CHONDROSARCOMA
     Dosage: 360 MG, UNK
     Route: 065
     Dates: start: 20171226
  2. NKTR-214 [Suspect]
     Active Substance: INVESTIGATIONAL PRODUCT
     Indication: CHONDROSARCOMA
     Dosage: 0.006 MG/KG, UNK
     Route: 065
     Dates: start: 20171226

REACTIONS (3)
  - Ejection fraction decreased [Recovered/Resolved]
  - Malignant neoplasm progression [Unknown]
  - Acute kidney injury [Unknown]

NARRATIVE: CASE EVENT DATE: 20180213
